FAERS Safety Report 6741702-1 (Version None)
Quarter: 2010Q2

REPORT INFORMATION
  Report Type: 
  Country: None (occurrence: None)
  Receive Date: 20100526
  Receipt Date: 20100518
  Transmission Date: 20101027
  Serious: Yes (Death, Hospitalization)
  Sender: FDA-Public Use
  Company Number: PL-WYE-H15253210

PATIENT
  Sex: Female

DRUGS (1)
  1. TYGACIL [Suspect]
     Indication: ABDOMINAL INFECTION
     Dosage: UNKNOWN

REACTIONS (2)
  - HEPATIC ATROPHY [None]
  - LIVER INJURY [None]
